FAERS Safety Report 4992542-5 (Version None)
Quarter: 2006Q1

REPORT INFORMATION
  Report Type: 
  Country: None (occurrence: None)
  Receive Date: 20060314
  Receipt Date: 20060131
  Transmission Date: 20060701
  Serious: No
  Sender: FDA-Public Use
  Company Number: 2006-00203

PATIENT
  Age: 73 Year
  Sex: Male
  Weight: 66.7 kg

DRUGS (5)
  1. VELCADE [Suspect]
     Indication: MULTIPLE MYELOMA
     Dosage: 2.50 MG INTRAVENOUS
     Route: 042
     Dates: start: 20050930, end: 20051201
  2. DECADRON SRC [Concomitant]
  3. ZOMETA [Concomitant]
  4. ACYCLOVIR [Concomitant]
  5. ATIVAN [Concomitant]

REACTIONS (7)
  - ANOREXIA [None]
  - DIARRHOEA [None]
  - DRY MOUTH [None]
  - NEUROPATHY PERIPHERAL [None]
  - PAIN IN EXTREMITY [None]
  - PERSONALITY CHANGE [None]
  - WEIGHT DECREASED [None]
